FAERS Safety Report 8600478-3 (Version None)
Quarter: 2012Q3

REPORT INFORMATION
  Report Type: 
  Country: None (occurrence: None)
  Receive Date: 20120808
  Receipt Date: 20120808
  Transmission Date: 20120928
  Serious: Yes (Life-Threatening)
  Sender: FDA-Public Use
  Company Number: None

PATIENT
  Age: 67 Year
  Sex: Female
  Weight: 97.0698 kg

DRUGS (1)
  1. VISIPAQUE 320 [Suspect]
     Indication: DYSPNOEA
     Dates: start: 20120730

REACTIONS (3)
  - THROAT TIGHTNESS [None]
  - CHEMICAL INJURY [None]
  - DYSPNOEA [None]
